FAERS Safety Report 23723803 (Version 2)
Quarter: 2024Q2

REPORT INFORMATION
  Report Type: Spontaneous
  Country: US (occurrence: US)
  Receive Date: 20240409
  Receipt Date: 20240625
  Transmission Date: 20240716
  Serious: Yes (Other)
  Sender: FDA-Public Use
  Company Number: US-SMPA-2024SUN000247

PATIENT

DRUGS (1)
  1. APTIOM [Suspect]
     Active Substance: ESLICARBAZEPINE ACETATE
     Dosage: 600 MG, QD
     Route: 048

REACTIONS (5)
  - Seizure [Unknown]
  - Autophobia [Unknown]
  - Dysarthria [Unknown]
  - Balance disorder [Unknown]
  - Therapy interrupted [Unknown]
